FAERS Safety Report 18257896 (Version 1)
Quarter: 2020Q3

REPORT INFORMATION
  Report Type: Spontaneous
  Country: NL (occurrence: NL)
  Receive Date: 20200911
  Receipt Date: 20200911
  Transmission Date: 20201103
  Serious: Yes (Other)
  Sender: FDA-Public Use
  Company Number: NL-TEVA-2020-NL-1825107

PATIENT
  Sex: Female
  Weight: 78.4 kg

DRUGS (11)
  1. AMLODIPINE TABLET   5MG / BRAND NAME NOT SPECIFIED [Concomitant]
     Dosage: UNIT DOSE: 5 MG (MILLIGRAM),
  2. ESCITALOPRAM [Suspect]
     Active Substance: ESCITALOPRAM OXALATE
     Indication: DEPRESSION
     Dosage: 10 MILLIGRAM DAILY;  THERAPY END DATE : ASKED BUT UNKNOWN
     Route: 065
     Dates: start: 20200514
  3. SIMVASTATINE TABLET FO 20MG / BRAND NAME NOT SPECIFIED [Concomitant]
     Active Substance: SIMVASTATIN
     Dosage: 20 MG (MILLIGRAM), UNIT DOSE: 20 MG,
  4. DESLORATADINE TABLET 5MG / AERIUS TABLET FILMOMHULD 5MG [Concomitant]
     Dosage: 5 MG (MILLIGRAM). UNIT DOSE: 5 MG,
  5. ACENOCOUMAROL TABLET 1MG / BRAND NAME NOT SPECIFIED [Concomitant]
     Dosage: 1 MG , UNIT DOSE: 1 MG,
  6. PLANTAGO OVATA POEDER 3,4G / METAMUCIL SKVR LEMON POEDER 3,4G IN SACHE [Concomitant]
     Dosage: SACHET (POWDER), 3.4 G (GRAM), UNIT DOSE: 3.4 GRAM
  7. METOPROLOL TABLET MGA 100MG (SUCCINAAT) / BRAND NAME NOT SPECIFIED [Concomitant]
     Dosage: 100 MG (MILLIGRAMS), UNIT DOSE: 100 MG,
  8. PARACETAMOL TABLET  500MG / BRAND NAME NOT SPECIFIED [Concomitant]
     Dosage: 500 MG (MILLIGRAM), UNIT DOSE: 500 MG,
  9. FENTANYL TRANSDERMAL SYSTEM [Interacting]
     Active Substance: FENTANYL
     Indication: PAIN
     Dosage: 1 PER 3 DAYS, UNIT DOSE: 1 DOSAGE FORMS, PLASTER
     Dates: start: 20200722, end: 20200723
  10. PANTOPRAZOL TABLET MSR 40MG / PANTOZOL TABLET MSR 40MG [Concomitant]
     Dosage: 40 MG (MILLIGRAM), UNIT DOSE: 40 MG,
  11. MACROGOL/ZOUTEN PDR V DRANK (MOVIC/MOLAX/LAXT/GEN) / MOVICOLON POEDER [Concomitant]
     Dosage: POWDER FOR BEVERAGE,

REACTIONS (3)
  - Drug interaction [Recovered/Resolved]
  - Dyspnoea [Recovered/Resolved]
  - Oxygen saturation decreased [Recovered/Resolved]
